FAERS Safety Report 9753431 (Version 2)
Quarter: 2013Q4

REPORT INFORMATION
  Report Type: Spontaneous
  Country: None (occurrence: US)
  Receive Date: 20131213
  Receipt Date: 20131216
  Transmission Date: 20140711
  Serious: Yes (Other)
  Sender: FDA-Public Use
  Company Number: US-TEVA-403989USA

PATIENT
  Age: 46 Year
  Sex: Female

DRUGS (1)
  1. PARAGARD 380A [Suspect]
     Indication: CONTRACEPTION
     Route: 015
     Dates: start: 2006, end: 20130326

REACTIONS (6)
  - Endometritis [Unknown]
  - Medical device complication [Recovered/Resolved]
  - Embedded device [Recovered/Resolved]
  - Pelvic pain [Unknown]
  - Abdominal distension [Unknown]
  - Dyspareunia [Unknown]
